FAERS Safety Report 4674362-4 (Version None)
Quarter: 2005Q2

REPORT INFORMATION
  Report Type: 
  Country: None (occurrence: None)
  Receive Date: 20050526
  Receipt Date: 20050517
  Transmission Date: 20051028
  Serious: Yes (Other)
  Sender: FDA-Public Use
  Company Number: US-AMGEN-US133685

PATIENT
  Sex: Female

DRUGS (5)
  1. ENBREL [Suspect]
     Indication: DRUG USE FOR UNKNOWN INDICATION
  2. NADOLOL [Concomitant]
  3. NORTRIPTYLINE HCL [Concomitant]
  4. NEXIUM [Concomitant]
  5. DARVOCET-N 100 [Concomitant]
     Indication: RHEUMATOID ARTHRITIS

REACTIONS (1)
  - VASCULITIS [None]
